FAERS Safety Report 8568658 (Version 3)
Quarter: 2013Q1

REPORT INFORMATION
  Report Type: Spontaneous
  Country: CA (occurrence: CA)
  Receive Date: 20120518
  Receipt Date: 20130110
  Transmission Date: 20140127
  Serious: Yes (Hospitalization, Other)
  Sender: FDA-Public Use
  Company Number: CA-AMGEN-CANSP2012015174

PATIENT
  Age: 70 Year
  Sex: Female
  Weight: 73.47 kg

DRUGS (13)
  1. ENBREL [Suspect]
     Indication: RHEUMATOID ARTHRITIS
     Dosage: 50 MG, QWK
     Route: 058
     Dates: start: 200410, end: 20120109
  2. FOLIC ACID [Concomitant]
     Dosage: 5 MG, QD
  3. OXYCODONE [Concomitant]
     Dosage: 10 MG, UNK
  4. MIRAPEX [Concomitant]
     Dosage: 0.25 MG, QHS
  5. CYTOTEC [Concomitant]
     Dosage: 200 MUG, BID
  6. PANTOLOC                           /01263204/ [Concomitant]
     Dosage: 40 MG, QD
  7. VITAMIN D /00107901/ [Concomitant]
     Dosage: 1000 IU, QD
  8. NOVO-TRIPTYN [Concomitant]
     Dosage: 10 MG, QHS
  9. PROLIA [Concomitant]
     Dosage: 60 MG, Q6MO
     Route: 058
  10. QUETIAPINE [Concomitant]
     Dosage: 25 MG, UNK
  11. CALCIUM CARBONATE [Concomitant]
     Dosage: 500 MG, TID
  12. METHOTREXATE [Concomitant]
     Dosage: 12.5 MG, QWK
  13. CELEXA                             /00582602/ [Concomitant]
     Dosage: 40 MG, UNK

REACTIONS (10)
  - Squamous cell carcinoma of head and neck [Not Recovered/Not Resolved]
  - Squamous cell carcinoma of lung [Not Recovered/Not Resolved]
  - Obstructive airways disorder [Not Recovered/Not Resolved]
  - Metastases to muscle [Not Recovered/Not Resolved]
  - Metastases to lymph nodes [Not Recovered/Not Resolved]
  - Radiation mucositis [Recovered/Resolved]
  - Pyrexia [Recovered/Resolved]
  - Dehydration [Unknown]
  - Hip fracture [Recovered/Resolved]
  - Fall [Recovered/Resolved]
